FAERS Safety Report 17258385 (Version 2)
Quarter: 2020Q1

REPORT INFORMATION
  Report Type: Spontaneous
  Country: FR (occurrence: FR)
  Receive Date: 20200110
  Receipt Date: 20200123
  Transmission Date: 20200409
  Serious: Yes (Hospitalization, Other)
  Sender: FDA-Public Use
  Company Number: FR-PFIZER INC-2020010219

PATIENT
  Age: 57 Year
  Sex: Male

DRUGS (2)
  1. EFFEXOR [Suspect]
     Active Substance: VENLAFAXINE HYDROCHLORIDE
     Indication: BIPOLAR DISORDER
     Dosage: 75 MG, 1X/DAY
     Route: 048
     Dates: start: 201806, end: 20191201
  2. THERALENE [Suspect]
     Active Substance: TRIMEPRAZINE
     Indication: BIPOLAR DISORDER
     Dosage: UNK, 1X/DAY (5-10MG IN THE EVENING)
     Route: 048
     Dates: start: 201902, end: 20191029

REACTIONS (3)
  - Tonic convulsion [Recovered/Resolved]
  - Off label use [Unknown]
  - Product use in unapproved indication [Unknown]

NARRATIVE: CASE EVENT DATE: 201806
